FAERS Safety Report 24133084 (Version 1)
Quarter: 2024Q3

REPORT INFORMATION
  Report Type: Spontaneous
  Country: US (occurrence: None)
  Receive Date: 20240723
  Receipt Date: 20240723
  Transmission Date: 20241016
  Serious: No
  Sender: Public
  Company Number: None

PATIENT
  Age: 16 Year
  Sex: Female

DRUGS (1)
  1. DUPIXENT [Suspect]
     Active Substance: DUPILUMAB
     Indication: Dermatitis atopic
     Dates: start: 20230919, end: 20240619

REACTIONS (5)
  - Eye pruritus [None]
  - Eye irritation [None]
  - Ocular hyperaemia [None]
  - Therapy interrupted [None]
  - Therapy cessation [None]

NARRATIVE: CASE EVENT DATE: 20240501
